FAERS Safety Report 8106213-X (Version None)
Quarter: 2012Q1

REPORT INFORMATION
  Report Type: 
  Country: None (occurrence: None)
  Receive Date: 20120130
  Receipt Date: 20120118
  Transmission Date: 20120608
  Serious: Yes (Other)
  Sender: FDA-Public Use
  Company Number: 2012SP003501

PATIENT

DRUGS (1)
  1. CERAZETTE (DESOGESTREL /00754001/) [Suspect]
     Indication: PRODUCT USED FOR UNKNOWN INDICATION

REACTIONS (2)
  - PELVIC POUCH PROCEDURE [None]
  - COLECTOMY TOTAL [None]
